FAERS Safety Report 21899383 (Version 1)
Quarter: 2023Q1

REPORT INFORMATION
  Report Type: Spontaneous
  Country: RO (occurrence: RO)
  Receive Date: 20230123
  Receipt Date: 20230123
  Transmission Date: 20230417
  Serious: Yes (Other)
  Sender: FDA-Public Use
  Company Number: RO-MEDO2008-L202211191

PATIENT
  Age: 14 Month
  Sex: Female

DRUGS (5)
  1. VANCOMYCIN [Suspect]
     Active Substance: VANCOMYCIN
     Indication: Splenic abscess
     Dosage: 40 MILLIGRAM/KILOGRAM, QD
     Route: 065
  2. CLINDAMYCIN [Suspect]
     Active Substance: CLINDAMYCIN
     Indication: Splenic abscess
     Dosage: 30 MILLIGRAM/KILOGRAM, QD
     Route: 065
  3. MEROPENEM [Suspect]
     Active Substance: MEROPENEM
     Indication: Splenic abscess
     Dosage: 60 MILLIGRAM/KILOGRAM, QD
     Route: 065
  4. FLUCONAZOLE [Concomitant]
     Active Substance: FLUCONAZOLE
     Dosage: 6 MILLIGRAM/KILOGRAM, QD
     Route: 065
  5. HYDROCORTISONE [Concomitant]
     Active Substance: HYDROCORTISONE
     Dosage: UNK
     Route: 065

REACTIONS (4)
  - Infusion site thrombosis [Unknown]
  - Dysbiosis [Unknown]
  - Diarrhoea [Unknown]
  - Rash [Unknown]
